FAERS Safety Report 8243756-2 (Version None)
Quarter: 2012Q1

REPORT INFORMATION
  Report Type: 
  Country: None (occurrence: None)
  Receive Date: 20120329
  Receipt Date: 20110721
  Transmission Date: 20120608
  Serious: No
  Sender: FDA-Public Use
  Company Number: US-MYLANLABS-2011S1015417

PATIENT
  Sex: Female

DRUGS (1)
  1. EMSAM [Suspect]
     Dosage: Q24H
     Route: 062
     Dates: end: 20110707

REACTIONS (3)
  - INSOMNIA [None]
  - NAUSEA [None]
  - DYSPNOEA [None]
